FAERS Safety Report 9818153 (Version 2)
Quarter: 2014Q1

REPORT INFORMATION
  Report Type: Spontaneous
  Country: FI (occurrence: FI)
  Receive Date: 20140115
  Receipt Date: 20140121
  Transmission Date: 20141002
  Serious: Yes (Other)
  Sender: FDA-Public Use
  Company Number: CHPA2014FI000690

PATIENT
  Age: 80 Year
  Sex: Male

DRUGS (4)
  1. SCOPODERM TTS [Suspect]
     Indication: SALIVARY HYPERSECRETION
     Dosage: 1 DF, Q72H
     Dates: start: 20131219
  2. SCOPODERM TTS [Suspect]
     Indication: OFF LABEL USE
     Dosage: 1 DF, Q72H
  3. SCOPODERM TTS [Suspect]
     Dosage: 1 UNK, UNK
     Dates: start: 20140106, end: 20140106
  4. FRAGMIN [Concomitant]

REACTIONS (8)
  - Unresponsive to stimuli [Recovered/Resolved]
  - Loss of consciousness [Recovered/Resolved]
  - Disorientation [Recovered/Resolved]
  - Somnolence [Recovered/Resolved]
  - Therapeutic response unexpected [Unknown]
  - Fatigue [Recovered/Resolved]
  - Urinary retention [Recovered/Resolved]
  - Off label use [Unknown]
